FAERS Safety Report 19052903 (Version 7)
Quarter: 2021Q3

REPORT INFORMATION
  Report Type: Spontaneous
  Country: AT (occurrence: AT)
  Receive Date: 20210325
  Receipt Date: 20210906
  Transmission Date: 20211014
  Serious: Yes (Death, Other)
  Sender: FDA-Public Use
  Company Number: AT-CELLTRION INC.-2021AT003786

PATIENT

DRUGS (25)
  1. TRASTUZUMAB. [Suspect]
     Active Substance: TRASTUZUMAB
     Indication: METASTASES TO LIVER
     Dosage: UNK; STOP DATE: ???OCT?2018
     Route: 065
     Dates: end: 201810
  2. CISPLATIN. [Suspect]
     Active Substance: CISPLATIN
     Indication: HER2 POSITIVE GASTRIC CANCER
     Dosage: FIRST LINE THERAPY 6 CYCLES (CYCLICAL)/6 CYCLICAL
     Route: 065
     Dates: start: 201609, end: 201703
  3. RAMUCIRUMAB [Concomitant]
     Active Substance: RAMUCIRUMAB
     Indication: METASTATIC GASTRIC CANCER
     Dosage: 2ND LINE THERAPY 6 CYCLES
     Route: 065
     Dates: start: 201904, end: 201910
  4. RAMUCIRUMAB [Concomitant]
     Active Substance: RAMUCIRUMAB
     Dosage: MAINTENANCE THERAPY
     Route: 065
     Dates: start: 201910, end: 201912
  5. CISPLATIN. [Suspect]
     Active Substance: CISPLATIN
     Indication: METASTASES TO LYMPH NODES
     Dosage: CYCLICAL
     Route: 065
     Dates: start: 201609, end: 201703
  6. CISPLATIN. [Suspect]
     Active Substance: CISPLATIN
     Indication: METASTASES TO LIVER
  7. CAPECITABINE. [Suspect]
     Active Substance: CAPECITABINE
     Indication: HER2 POSITIVE GASTRIC CANCER
     Dosage: FIRST LINE THERAPY 6 CYCLES (CYCLICAL)/6 CYLICAL
     Route: 065
     Dates: start: 201609, end: 201703
  8. CAPECITABINE. [Suspect]
     Active Substance: CAPECITABINE
     Indication: METASTASES TO LYMPH NODES
  9. PACLITAXEL. [Concomitant]
     Active Substance: PACLITAXEL
     Indication: METASTATIC GASTRIC CANCER
     Dosage: 2ND LINE THERAPY 6 CYCLES
     Route: 065
     Dates: start: 201904, end: 201910
  10. TRASTUZUMAB. [Suspect]
     Active Substance: TRASTUZUMAB
     Indication: ADENOCARCINOMA GASTRIC
     Dosage: MAINTENANCE THERAPY
     Route: 065
     Dates: start: 201703, end: 201810
  11. CISPLATIN. [Suspect]
     Active Substance: CISPLATIN
     Indication: ADENOCARCINOMA GASTRIC
     Dosage: UNK, CYCLIC (6 CYCLE)
     Dates: start: 201609, end: 201710
  12. CISPLATIN. [Suspect]
     Active Substance: CISPLATIN
     Indication: METASTASES TO LYMPH NODES
     Dosage: UNK, CYCLIC (6 CYCLE)/6 CYCLICAL
     Dates: start: 201609, end: 201703
  13. CAPECITABINE. [Suspect]
     Active Substance: CAPECITABINE
     Indication: ADENOCARCINOMA GASTRIC
     Dosage: UNK
     Route: 048
     Dates: start: 2016
  14. CAPECITABINE. [Suspect]
     Active Substance: CAPECITABINE
     Indication: METASTASES TO LIVER
     Dosage: CYCLICAL
     Route: 065
     Dates: start: 201609, end: 201703
  15. TRASTUZUMAB. [Suspect]
     Active Substance: TRASTUZUMAB
     Indication: METASTASES TO LYMPH NODES
     Dosage: UNK, CYCLIC (6 CYCLE)
     Dates: start: 201609, end: 201703
  16. CAPECITABINE. [Suspect]
     Active Substance: CAPECITABINE
     Indication: ADENOCARCINOMA GASTRIC
     Dosage: UNK, CYCLIC (6 CYCLE)
     Dates: start: 201609, end: 201703
  17. TRASTUZUMAB. [Suspect]
     Active Substance: TRASTUZUMAB
     Indication: ADENOCARCINOMA GASTRIC
  18. TRASTUZUMAB. [Suspect]
     Active Substance: TRASTUZUMAB
     Indication: METASTASES TO LIVER
  19. CISPLATIN. [Suspect]
     Active Substance: CISPLATIN
     Indication: ADENOCARCINOMA GASTRIC
     Dosage: UNK
     Route: 065
     Dates: start: 2016
  20. CISPLATIN. [Suspect]
     Active Substance: CISPLATIN
     Indication: METASTASES TO LIVER
  21. TRASTUZUMAB. [Suspect]
     Active Substance: TRASTUZUMAB
     Indication: HER2 POSITIVE GASTRIC CANCER
     Dosage: FIRST LINE THERAPY 6 CYCLES (CYCLICAL)/6 CYLICAL
     Route: 065
     Dates: start: 201609, end: 201703
  22. TRASTUZUMAB. [Suspect]
     Active Substance: TRASTUZUMAB
     Indication: METASTASES TO LYMPH NODES
     Dosage: SYSTEMIC THERAPY WITH ORAL CAPECITABINE
     Route: 065
     Dates: start: 201810, end: 201903
  23. CAPECITABINE. [Suspect]
     Active Substance: CAPECITABINE
     Indication: METASTASES TO LYMPH NODES
     Dosage: SYSTEMIC THERAPY WITH TRASTUZUMAB
     Route: 048
     Dates: start: 201810, end: 201903
  24. TRASTUZUMAB. [Suspect]
     Active Substance: TRASTUZUMAB
     Dosage: CYCLICAL
     Route: 065
     Dates: start: 201609, end: 201703
  25. CAPECITABINE. [Suspect]
     Active Substance: CAPECITABINE
     Indication: METASTASES TO LIVER

REACTIONS (18)
  - Adenocarcinoma [Fatal]
  - Disease progression [Fatal]
  - Neoplasm progression [Fatal]
  - Metastases to peritoneum [Fatal]
  - White blood cell count decreased [Unknown]
  - Colostomy [Unknown]
  - Infection [Unknown]
  - Palmar-plantar erythrodysaesthesia syndrome [Unknown]
  - Malignant mesenteric neoplasm [Fatal]
  - Toxicity to various agents [Unknown]
  - Therapy partial responder [Unknown]
  - Metastases to lung [Fatal]
  - Metastatic gastric cancer [Fatal]
  - Metastases to liver [Fatal]
  - Metastases to lymph nodes [Fatal]
  - Disease progression [Unknown]
  - Disease progression [Unknown]
  - Ileus [Unknown]

NARRATIVE: CASE EVENT DATE: 201810
